FAERS Safety Report 5149292-4 (Version None)
Quarter: 2006Q4

REPORT INFORMATION
  Report Type: 
  Country: None (occurrence: None)
  Receive Date: 20061113
  Receipt Date: 20051028
  Transmission Date: 20070319
  Serious: No
  Sender: FDA-Public Use
  Company Number: 423067

PATIENT
  Age: 59 Year
  Sex: Male

DRUGS (6)
  1. COREG [Suspect]
     Indication: HYPERTENSION
     Dosage: 6.25MG THREE TIMES PER DAY
     Route: 048
     Dates: start: 20030101
  2. CATAPRES [Concomitant]
  3. ALTACE [Concomitant]
  4. MICARDIS [Concomitant]
  5. TAZAC [Concomitant]
  6. HUMULIN INSULIN [Concomitant]
     Route: 065

REACTIONS (4)
  - HEART RATE DECREASED [None]
  - MEDICATION RESIDUE [None]
  - OEDEMA PERIPHERAL [None]
  - SENSATION OF HEAVINESS [None]
